FAERS Safety Report 19704450 (Version 1)
Quarter: 2021Q3

REPORT INFORMATION
  Report Type: Spontaneous
  Country: FR (occurrence: FR)
  Receive Date: 20210816
  Receipt Date: 20210816
  Transmission Date: 20211014
  Serious: Yes (Other)
  Sender: FDA-Public Use
  Company Number: FR-ROCHE-2888338

PATIENT
  Age: 21 Year
  Sex: Male

DRUGS (5)
  1. VALIUM [Suspect]
     Active Substance: DIAZEPAM
     Dosage: 50 TO 150 MG / DAY
     Route: 048
  2. COCAINE [Suspect]
     Active Substance: COCAINE
     Indication: PRODUCT USED FOR UNKNOWN INDICATION
     Dosage: FOR SEVERAL YEARS
     Route: 045
  3. VALIUM [Suspect]
     Active Substance: DIAZEPAM
     Indication: PRODUCT USED FOR UNKNOWN INDICATION
     Dosage: 50 TO 150 MG / DAY
     Route: 045
  4. CANNABIS [Suspect]
     Active Substance: CANNABIS SATIVA SUBSP. INDICA TOP
     Indication: PRODUCT USED FOR UNKNOWN INDICATION
     Dosage: 1 ?2 JOINTS/J
     Route: 055
  5. COCAINE [Suspect]
     Active Substance: COCAINE
     Dosage: FOR SEVERAL YEARS
     Route: 055

REACTIONS (2)
  - Substance use disorder [Not Recovered/Not Resolved]
  - Drug dependence [Not Recovered/Not Resolved]
